FAERS Safety Report 8788243 (Version 1)
Quarter: 2012Q4

REPORT INFORMATION
  Report Type: 
  Country: US (occurrence: US)
  Receive Date: 20120914
  Receipt Date: 20120914
  Transmission Date: 20130627
  Serious: Yes (Hospitalization)
  Sender: FDA-Public Use
  Company Number: US-VERTEX PHARMACEUTICAL INC.-AE-2012-000098

PATIENT
  Sex: Male
  Weight: 84.91 kg

DRUGS (10)
  1. INCIVEK [Suspect]
     Indication: HEPATITIS C
     Route: 048
     Dates: end: 20120223
  2. RIBAPACK [Concomitant]
     Indication: HEPATITIS C
     Route: 048
  3. PEGASYS [Concomitant]
     Indication: HEPATITIS C
     Route: 058
  4. RAMIPRIL [Concomitant]
  5. METFORMIN [Concomitant]
  6. DIGOXIN [Concomitant]
  7. TOPROL [Concomitant]
  8. CYCLOBENZAPRINE [Concomitant]
  9. PRADAXA [Concomitant]
  10. FLUTICASONE [Concomitant]

REACTIONS (2)
  - Anaemia [Recovered/Resolved]
  - Pruritus [Not Recovered/Not Resolved]
